FAERS Safety Report 20100991 (Version 1)
Quarter: 2021Q4

REPORT INFORMATION
  Report Type: Spontaneous
  Country: AR (occurrence: None)
  Receive Date: 20211123
  Receipt Date: 20211123
  Transmission Date: 20220303
  Serious: Yes (Other)
  Sender: FDA-Public Use
  Company Number: AR-ROCHE-2957522

PATIENT
  Sex: Female

DRUGS (5)
  1. TECENTRIQ [Suspect]
     Active Substance: ATEZOLIZUMAB
     Indication: Lung adenocarcinoma
     Route: 041
  2. CARBOPLATIN [Concomitant]
     Active Substance: CARBOPLATIN
     Dosage: DOSE: AUC 5.
     Dates: start: 201912
  3. PEMETREXED [Concomitant]
     Active Substance: PEMETREXED
     Dates: start: 201912
  4. DOCETAXEL [Concomitant]
     Active Substance: DOCETAXEL
  5. RAMUCIRUMAB [Concomitant]
     Active Substance: RAMUCIRUMAB

REACTIONS (3)
  - Hepatotoxicity [Unknown]
  - Epistaxis [Unknown]
  - Dyspnoea [Unknown]
